FAERS Safety Report 17306396 (Version 1)
Quarter: 2020Q1

REPORT INFORMATION
  Report Type: Spontaneous
  Country: HR (occurrence: HR)
  Receive Date: 20200123
  Receipt Date: 20200123
  Transmission Date: 20200409
  Serious: Yes (Other)
  Sender: FDA-Public Use
  Company Number: HR-TEVA-2020-HR-1171674

PATIENT
  Age: 66 Year
  Sex: Female

DRUGS (4)
  1. ELIQUIS [Suspect]
     Active Substance: APIXABAN
     Indication: CEREBROVASCULAR ACCIDENT PROPHYLAXIS
     Dosage: 5 MILLIGRAM, BID , 10 MG 1 DAYS
     Route: 065
  2. CLOPIDOGREL [Suspect]
     Active Substance: CLOPIDOGREL BISULFATE
     Dosage: 75 MILLIGRAM, QD , 75 MG 1 DAYS
     Route: 065
  3. SORTIS [Suspect]
     Active Substance: ATORVASTATIN
     Dosage: 80 MILLIGRAM, QD , 80 MG 1 DAYS
     Route: 065
  4. PANTOPRAZOLE [Suspect]
     Active Substance: PANTOPRAZOLE
     Dosage: 20 MILLIGRAM, QD , 20 MG 1 DAYS
     Route: 065

REACTIONS (1)
  - Atrial fibrillation [Unknown]
